FAERS Safety Report 6300359-4 (Version None)
Quarter: 2009Q3

REPORT INFORMATION
  Report Type: 
  Country: None (occurrence: None)
  Receive Date: 20090805
  Receipt Date: 20090729
  Transmission Date: 20100115
  Serious: Yes (Other)
  Sender: FDA-Public Use
  Company Number: CHPA2009US16069

PATIENT
  Age: 85 Year
  Sex: Male
  Weight: 65.8 kg

DRUGS (1)
  1. TRANSDERM SCOP [Suspect]
     Indication: DIZZINESS
     Dosage: 1.5 MG, Q72H, TRANSDERMAL
     Route: 062
     Dates: start: 20070101

REACTIONS (2)
  - DRUG DEPENDENCE [None]
  - VOMITING [None]
